APPROVED DRUG PRODUCT: AK-PENTOLATE
Active Ingredient: CYCLOPENTOLATE HYDROCHLORIDE
Strength: 1%
Dosage Form/Route: SOLUTION/DROPS;OPHTHALMIC
Application: A085555 | Product #001
Applicant: EPIC PHARMA LLC
Approved: Approved Prior to Jan 1, 1982 | RLD: No | RS: No | Type: DISCN